FAERS Safety Report 5620246-4 (Version None)
Quarter: 2008Q1

REPORT INFORMATION
  Report Type: 
  Country: None (occurrence: None)
  Receive Date: 20080208
  Receipt Date: 20080131
  Transmission Date: 20080703
  Serious: Yes (Other)
  Sender: FDA-Public Use
  Company Number: B0500600A

PATIENT
  Age: 9 Year
  Sex: Female
  Weight: 27 kg

DRUGS (2)
  1. RELENZA [Suspect]
     Indication: INFLUENZA
     Dosage: 10MG TWICE PER DAY
     Route: 055
     Dates: start: 20071214, end: 20071214
  2. CALONAL [Concomitant]
     Indication: INFLUENZA
     Dosage: 200MG THREE TIMES PER DAY
     Route: 048
     Dates: start: 20071214, end: 20071224

REACTIONS (6)
  - ABNORMAL BEHAVIOUR [None]
  - AGITATION [None]
  - CRYING [None]
  - ILL-DEFINED DISORDER [None]
  - SCREAMING [None]
  - TREMOR [None]
